FAERS Safety Report 4540002-8 (Version None)
Quarter: 2004Q4

REPORT INFORMATION
  Report Type: 
  Country: None (occurrence: None)
  Receive Date: 20041223
  Receipt Date: 20041210
  Transmission Date: 20050328
  Serious: Yes (Hospitalization)
  Sender: FDA-Public Use
  Company Number: L04-UKI-08166-01

PATIENT
  Age: 59 Year
  Sex: Male

DRUGS (6)
  1. CARBAMAZEPINE [Suspect]
     Indication: NEUROPATHIC PAIN
     Dosage: 1000 MG QD
  2. CARBAMAZEPINE [Suspect]
     Indication: NEUROPATHIC PAIN
     Dosage: 1000 MG QD
  3. CARBAMAZEPINE [Suspect]
     Indication: NEUROPATHIC PAIN
     Dosage: 1000 MG QD
  4. RAMIPRIL [Concomitant]
  5. SIMVASTATIN [Concomitant]
  6. ASPIRIN [Concomitant]

REACTIONS (5)
  - CONDITION AGGRAVATED [None]
  - MANIA [None]
  - PSORIASIS [None]
  - THERAPY NON-RESPONDER [None]
  - TREATMENT NONCOMPLIANCE [None]
